FAERS Safety Report 4880910-1 (Version None)
Quarter: 2005Q4

REPORT INFORMATION
  Report Type: 
  Country: None (occurrence: None)
  Receive Date: 20051223
  Receipt Date: 20051103
  Transmission Date: 20060501
  Serious: No
  Sender: FDA-Public Use
  Company Number: 05P-163-0316427-00

PATIENT
  Age: 17 Year
  Sex: Female
  Weight: 47.6277 kg

DRUGS (2)
  1. HUMIRA [Suspect]
     Indication: TAKAYASU'S ARTERITIS
     Dosage: 40 MG, 1 IN 2 WK, SUBCUTANEOUS
     Route: 058
     Dates: start: 20030101
  2. METHOTREXATE [Concomitant]

REACTIONS (5)
  - ABDOMINAL PAIN [None]
  - DIZZINESS [None]
  - EATING DISORDER SYMPTOM [None]
  - VISUAL DISTURBANCE [None]
  - WEIGHT DECREASED [None]
